FAERS Safety Report 24010346 (Version 6)
Quarter: 2025Q4

REPORT INFORMATION
  Report Type: Spontaneous
  Country: US (occurrence: US)
  Receive Date: 20240625
  Receipt Date: 20251015
  Transmission Date: 20260117
  Serious: Yes (Other)
  Sender: PFIZER
  Company Number: US-PFIZER INC-PV202400083223

PATIENT
  Age: 81 Year
  Sex: Female
  Weight: 46.54 kg

DRUGS (1)
  1. XELJANZ XR [Suspect]
     Active Substance: TOFACITINIB CITRATE
     Indication: Rheumatoid arthritis
     Dosage: 11 MG, 1X/DAY

REACTIONS (5)
  - Hip arthroplasty [Unknown]
  - Fall [Unknown]
  - Sinusitis [Unknown]
  - Condition aggravated [Unknown]
  - Mass [Unknown]

NARRATIVE: CASE EVENT DATE: 20240901
